FAERS Safety Report 21662014 (Version 4)
Quarter: 2023Q4

REPORT INFORMATION
  Report Type: Spontaneous
  Country: RU (occurrence: RU)
  Receive Date: 20221130
  Receipt Date: 20231017
  Transmission Date: 20240110
  Serious: Yes (Death, Other)
  Sender: FDA-Public Use
  Company Number: RU-AMGEN-RUSSP2022205015

PATIENT

DRUGS (2)
  1. XGEVA [Suspect]
     Active Substance: DENOSUMAB
     Indication: Bone giant cell tumour
     Dosage: 120 MILLIGRAM, Q4WK
     Route: 058
  2. XGEVA [Suspect]
     Active Substance: DENOSUMAB
     Dosage: 120 MILLIGRAM, Q3MO
     Route: 058

REACTIONS (10)
  - Death [Fatal]
  - Bone giant cell tumour malignant [Unknown]
  - Metastases to lung [Unknown]
  - Pathological fracture [Unknown]
  - Osteonecrosis of jaw [Unknown]
  - Complication associated with device [Unknown]
  - Post procedural complication [Unknown]
  - Treatment noncompliance [Unknown]
  - Hypocalcaemia [Unknown]
  - Off label use [Unknown]
